FAERS Safety Report 5963872-5 (Version None)
Quarter: 2008Q4

REPORT INFORMATION
  Report Type: 
  Country: None (occurrence: None)
  Receive Date: 20081121
  Receipt Date: 20081121
  Transmission Date: 20090506
  Serious: Yes (Life-Threatening)
  Sender: FDA-Public Use
  Company Number: None

PATIENT
  Age: 51 Year
  Sex: Female
  Weight: 65.7716 kg

DRUGS (16)
  1. BOTOX [Suspect]
     Indication: MIGRAINE
     Dosage: 75 UNITS, 75 UNITS, 75 UNITS
     Dates: start: 20051021
  2. BOTOX [Suspect]
     Indication: MIGRAINE
     Dosage: 75 UNITS, 75 UNITS, 75 UNITS
     Dates: start: 20060726
  3. BOTOX [Suspect]
     Indication: MIGRAINE
     Dosage: 75 UNITS, 75 UNITS, 75 UNITS
     Dates: start: 20061027
  4. TOPAMAX [Concomitant]
  5. BUTTERBUN ROOT - PETADOLEX [Concomitant]
  6. MULTI-VITAMIN [Concomitant]
  7. AMITRIPTYLINE HCL [Concomitant]
  8. WELLBUTRIN [Concomitant]
  9. DEPAKOTE [Concomitant]
  10. EVISTA [Concomitant]
  11. BENADRYL [Concomitant]
  12. OMEGA 3 FATTY ACIDS [Concomitant]
  13. CALCIUM GLUCONATE [Concomitant]
  14. PREDNISONE TAB [Concomitant]
  15. AMBIEN CR [Concomitant]
  16. POTASSIUM SUPPLEMENT [Concomitant]

REACTIONS (1)
  - UNEVALUABLE EVENT [None]
